FAERS Safety Report 13612747 (Version 1)
Quarter: 2017Q2

REPORT INFORMATION
  Report Type: Spontaneous
  Country: US (occurrence: US)
  Receive Date: 20170605
  Receipt Date: 20170605
  Transmission Date: 20170830
  Serious: No
  Sender: FDA-Public Use
  Company Number: US-ALLERGAN-1708468US

PATIENT
  Age: 28 Year
  Sex: Female

DRUGS (2)
  1. IBUPROFEN. [Concomitant]
     Active Substance: IBUPROFEN
     Indication: PRODUCT USED FOR UNKNOWN INDICATION
     Dosage: UNK UNK, PRN
     Route: 048
  2. KYBELLA [Suspect]
     Active Substance: DEOXYCHOLIC ACID
     Indication: FAT TISSUE INCREASED
     Dosage: 1 DF, SINGLE
     Route: 058
     Dates: start: 20170110, end: 20170110

REACTIONS (10)
  - Drug administered at inappropriate site [Unknown]
  - Inflammation [Not Recovered/Not Resolved]
  - Oral disorder [Not Recovered/Not Resolved]
  - VIIth nerve injury [Not Recovered/Not Resolved]
  - Swelling [Not Recovered/Not Resolved]
  - Facial asymmetry [Unknown]
  - Pain [Not Recovered/Not Resolved]
  - Hypoaesthesia [Not Recovered/Not Resolved]
  - Wrong technique in product usage process [Unknown]
  - Induration [Not Recovered/Not Resolved]

NARRATIVE: CASE EVENT DATE: 20170110
